FAERS Safety Report 13610311 (Version 2)
Quarter: 2017Q2

REPORT INFORMATION
  Report Type: Spontaneous
  Country: US (occurrence: US)
  Receive Date: 20170605
  Receipt Date: 20170627
  Transmission Date: 20170830
  Serious: Yes (Other)
  Sender: FDA-Public Use
  Company Number: US-GLENMARK PHARMACEUTICALS-2017GMK027715

PATIENT

DRUGS (2)
  1. MUPIROCIN. [Suspect]
     Active Substance: MUPIROCIN
     Indication: STAPHYLOCOCCAL INFECTION
     Dosage: 1 DF, TID (1 APPLICATION 3X/DAY INSIDE NOSE)
     Route: 045
     Dates: start: 20161214, end: 20161221
  2. MUPIROCIN. [Suspect]
     Active Substance: MUPIROCIN
     Indication: ENTEROBACTER INFECTION

REACTIONS (8)
  - Nasal discomfort [Not Recovered/Not Resolved]
  - Staphylococcal infection [Unknown]
  - Off label use [Unknown]
  - Condition aggravated [Unknown]
  - Mouth haemorrhage [Not Recovered/Not Resolved]
  - Enterobacter infection [Unknown]
  - Drug administered at inappropriate site [Unknown]
  - Epistaxis [Unknown]

NARRATIVE: CASE EVENT DATE: 20161214
